FAERS Safety Report 8810295 (Version 1)
Quarter: 2012Q4

REPORT INFORMATION
  Report Type: 
  Country: US (occurrence: US)
  Receive Date: 20120926
  Receipt Date: 20120926
  Transmission Date: 20130627
  Serious: Yes (Life-Threatening, Hospitalization, Other)
  Sender: FDA-Public Use
  Company Number: US-009507513-2012SP029447

PATIENT
  Age: 31 Year
  Sex: Female

DRUGS (5)
  1. NUVARING [Suspect]
     Indication: CONTRACEPTION
     Dosage: 1 DF, 3 weeks on, 1 week off
     Route: 067
     Dates: start: 20120416, end: 20120520
  2. NUVARING [Suspect]
     Indication: POLYCYSTIC OVARIES
  3. METFORMIN [Concomitant]
     Dosage: 1500 mg, qd
  4. TRIGLIDE [Concomitant]
     Dosage: 145 mg, qd
  5. ZOLOFT [Concomitant]
     Dosage: 100 mg, qd

REACTIONS (1)
  - Pulmonary embolism [Recovering/Resolving]
